FAERS Safety Report 24616651 (Version 2)
Quarter: 2024Q4

REPORT INFORMATION
  Report Type: Spontaneous
  Country: JP (occurrence: JP)
  Receive Date: 20241114
  Receipt Date: 20241118
  Transmission Date: 20250115
  Serious: Yes (Other)
  Sender: UCB
  Company Number: JP-UCBJ-CD202410946UCBPHAPROD

PATIENT
  Age: 7 Decade
  Sex: Male

DRUGS (1)
  1. BIMZELX [Suspect]
     Active Substance: BIMEKIZUMAB-BKZX
     Indication: Pustular psoriasis
     Dosage: UNK
     Route: 058
     Dates: start: 202405, end: 202409

REACTIONS (1)
  - Squamous cell carcinoma of skin [Unknown]
